FAERS Safety Report 12993565 (Version 1)
Quarter: 2016Q4

REPORT INFORMATION
  Report Type: Spontaneous
  Country: US (occurrence: US)
  Receive Date: 20161201
  Receipt Date: 20161201
  Transmission Date: 20170207
  Serious: Yes (Other)
  Sender: FDA-Public Use
  Company Number: None

PATIENT
  Age: 62 Year
  Sex: Male
  Weight: 63.5 kg

DRUGS (8)
  1. MENOCYCLINE [Concomitant]
  2. MULTIVITAMIN [Concomitant]
     Active Substance: VITAMINS
  3. CLINDAMYCIN. [Suspect]
     Active Substance: CLINDAMYCIN
     Indication: TOOTH INFECTION
     Route: 048
     Dates: start: 20120911, end: 20160908
  4. PAT-A-DAY [Concomitant]
  5. LOFTIL [Concomitant]
  6. INIPRIMINE [Concomitant]
  7. ESTER C [Concomitant]
  8. METOPROLO [Concomitant]
     Active Substance: METOPROLOL

REACTIONS (1)
  - Hernia [None]

NARRATIVE: CASE EVENT DATE: 201209
